FAERS Safety Report 4377962-4 (Version None)
Quarter: 2004Q2

REPORT INFORMATION
  Report Type: 
  Country: None (occurrence: None)
  Receive Date: 20040601
  Receipt Date: 20040212
  Transmission Date: 20050107
  Serious: No
  Sender: FDA-Public Use
  Company Number: WAES 0402USA01031

PATIENT
  Age: 71 Year
  Sex: Male
  Weight: 85.7298 kg

DRUGS (2)
  1. ZETIA [Suspect]
     Indication: DYSLIPIDAEMIA
     Dosage: 10MG/DAILY/PO
     Route: 048
     Dates: start: 20040120, end: 20040206
  2. ZETIA [Suspect]
     Indication: HYPERLIPIDAEMIA
     Dosage: 10MG/DAILY/PO
     Route: 048
     Dates: start: 20040120, end: 20040206

REACTIONS (1)
  - OEDEMA PERIPHERAL [None]
